FAERS Safety Report 8590862-9 (Version None)
Quarter: 2012Q3

REPORT INFORMATION
  Report Type: 
  Country: None (occurrence: None)
  Receive Date: 20120813
  Receipt Date: 20120731
  Transmission Date: 20120928
  Serious: Yes (Hospitalization)
  Sender: FDA-Public Use
  Company Number: JP-AMGEN-JPNCT2012050249

PATIENT
  Age: 79 Year
  Sex: Male
  Weight: 52 kg

DRUGS (19)
  1. ASPIRIN [Concomitant]
     Dosage: UNK
     Route: 048
  2. TORSEMIDE [Concomitant]
     Dosage: UNK
     Route: 048
  3. VOGLIBOSE [Concomitant]
     Dosage: UNK
     Route: 048
  4. NORVASC [Concomitant]
     Dosage: UNK
     Route: 048
  5. GASMOTIN [Concomitant]
     Dosage: UNK
     Route: 048
  6. ADALAT CC [Concomitant]
     Dosage: UNK
     Route: 048
  7. VITAMIN B12 [Concomitant]
     Dosage: UNK
     Route: 048
  8. TAMSULOSIN HCL [Concomitant]
     Dosage: UNK
     Route: 048
  9. DARBEPOETIN ALFA [Suspect]
     Indication: NEPHROGENIC ANAEMIA
     Dosage: 60 MUG, UNK
     Route: 058
     Dates: start: 20110712
  10. ISOSORBIDE DINITRATE [Concomitant]
     Dosage: UNK
     Route: 062
  11. URALYT [Concomitant]
     Dosage: UNK
     Route: 048
  12. ATELEC [Concomitant]
     Dosage: UNK
     Route: 048
  13. INDAPAMIDE [Concomitant]
     Dosage: UNK
     Route: 048
  14. KREMEZIN [Concomitant]
     Dosage: UNK
     Route: 048
  15. EPADEL-S [Concomitant]
     Dosage: UNK
     Route: 048
  16. OMEPRAZOLE [Concomitant]
     Dosage: UNK
     Route: 048
  17. DOXAZOSIN MESYLATE [Concomitant]
     Dosage: UNK
     Route: 048
  18. LASIX [Concomitant]
     Dosage: UNK
     Route: 048
  19. ISOSORBIDE MONONITRATE [Concomitant]
     Dosage: UNK
     Route: 048

REACTIONS (2)
  - CARDIAC FAILURE CONGESTIVE [None]
  - BLOOD PRESSURE INCREASED [None]
